FAERS Safety Report 24300839 (Version 1)
Quarter: 2024Q3

REPORT INFORMATION
  Report Type: Spontaneous
  Country: US (occurrence: US)
  Receive Date: 20240910
  Receipt Date: 20240910
  Transmission Date: 20241017
  Serious: Yes (Other)
  Sender: ROCHE
  Company Number: US-ROCHE-10000075057

PATIENT
  Age: 53 Year
  Sex: Male

DRUGS (6)
  1. OBINUTUZUMAB [Suspect]
     Active Substance: OBINUTUZUMAB
     Indication: Chronic lymphocytic leukaemia
     Dosage: 4 CYCLES
     Route: 065
  2. VENETOCLAX [Suspect]
     Active Substance: VENETOCLAX
     Indication: Chronic lymphocytic leukaemia
     Dosage: 4 CYCLES
     Route: 065
  3. IBRUTINIB [Concomitant]
     Active Substance: IBRUTINIB
  4. CYCLOPHOSPHAMIDE [Concomitant]
     Active Substance: CYCLOPHOSPHAMIDE
  5. VINCRISTINE [Concomitant]
     Active Substance: VINCRISTINE
  6. PIRTOBRUTINIB [Concomitant]
     Active Substance: PIRTOBRUTINIB

REACTIONS (1)
  - Disease progression [Unknown]
